FAERS Safety Report 6187435-4 (Version None)
Quarter: 2009Q2

REPORT INFORMATION
  Report Type: 
  Country: None (occurrence: None)
  Receive Date: 20090512
  Receipt Date: 20090427
  Transmission Date: 20091009
  Serious: No
  Sender: FDA-Public Use
  Company Number: US-MERCK-0904USA03186

PATIENT
  Age: 55 Year
  Sex: Female

DRUGS (2)
  1. CANCIDAS [Suspect]
     Indication: ASPERGILLOSIS
     Route: 065
     Dates: start: 20090411, end: 20090414
  2. CANCIDAS [Suspect]
     Route: 065
     Dates: start: 20090416, end: 20090424

REACTIONS (5)
  - JOINT SWELLING [None]
  - OEDEMA PERIPHERAL [None]
  - OFF LABEL USE [None]
  - TACHYCARDIA [None]
  - VEIN DISORDER [None]
